FAERS Safety Report 4451150-5 (Version None)
Quarter: 2004Q3

REPORT INFORMATION
  Report Type: 
  Country: None (occurrence: None)
  Receive Date: 20040916
  Receipt Date: 20040907
  Transmission Date: 20050211
  Serious: Yes (Hospitalization)
  Sender: FDA-Public Use
  Company Number: 200413318FR

PATIENT
  Age: 66 Year
  Sex: Male

DRUGS (2)
  1. FLAGYL [Suspect]
     Route: 048
     Dates: start: 20040715, end: 20040726
  2. FLUOROURACILE DAKOTA [Suspect]
     Route: 042
     Dates: start: 20040705, end: 20040710

REACTIONS (4)
  - C-REACTIVE PROTEIN INCREASED [None]
  - HAEMOGLOBIN DECREASED [None]
  - NEUTROPENIA [None]
  - PLATELET COUNT DECREASED [None]
